FAERS Safety Report 7098175-1 (Version None)
Quarter: 2010Q4

REPORT INFORMATION
  Report Type: 
  Country: None (occurrence: None)
  Receive Date: 20101112
  Receipt Date: 20101105
  Transmission Date: 20110411
  Serious: Yes (Other)
  Sender: FDA-Public Use
  Company Number: JP-BRISTOL-MYERS SQUIBB COMPANY-15378151

PATIENT
  Age: 28 Year
  Sex: Female

DRUGS (1)
  1. TAXOL [Suspect]
     Indication: METASTASES TO LIVER
     Dates: start: 20090901

REACTIONS (1)
  - HEPATITIS B [None]
